FAERS Safety Report 9697694 (Version 1)
Quarter: 2013Q4

REPORT INFORMATION
  Report Type: Spontaneous
  Country: US (occurrence: US)
  Receive Date: 20131120
  Receipt Date: 20131120
  Transmission Date: 20140711
  Serious: No
  Sender: FDA-Public Use
  Company Number: US-PFIZER INC-2013329948

PATIENT
  Age: 66 Year
  Sex: Male
  Weight: 97.5 kg

DRUGS (3)
  1. AMIODARONE HCL [Suspect]
     Dosage: UNK
  2. COUMADIN [Interacting]
     Indication: THROMBOSIS PROPHYLAXIS
     Dosage: UNK
  3. COUMADIN [Interacting]
     Indication: ATRIAL FIBRILLATION

REACTIONS (1)
  - Drug interaction [Unknown]
